FAERS Safety Report 5960123-2 (Version None)
Quarter: 2008Q4

REPORT INFORMATION
  Report Type: 
  Country: None (occurrence: None)
  Receive Date: 20081120
  Receipt Date: 20081111
  Transmission Date: 20090506
  Serious: Yes (Hospitalization)
  Sender: FDA-Public Use
  Company Number: TH-AVENTIS-200820725GDDC

PATIENT
  Age: 58 Year
  Sex: Male
  Weight: 63.5 kg

DRUGS (4)
  1. DOCETAXEL [Suspect]
     Indication: NON-SMALL CELL LUNG CANCER
     Route: 042
     Dates: start: 20081016, end: 20081016
  2. CISPLATIN [Suspect]
     Indication: NON-SMALL CELL LUNG CANCER
     Route: 042
     Dates: start: 20081016, end: 20081016
  3. DEXAMETHASONE [Concomitant]
  4. ONDANSETRON [Concomitant]

REACTIONS (2)
  - ASCITES [None]
  - HEPATIC CIRRHOSIS [None]
